FAERS Safety Report 6457920-6 (Version None)
Quarter: 2009Q4

REPORT INFORMATION
  Report Type: 
  Country: None (occurrence: None)
  Receive Date: 20091125
  Receipt Date: 20091120
  Transmission Date: 20100525
  Serious: Yes (Hospitalization, Other)
  Sender: FDA-Public Use
  Company Number: NO-B.I. PHARMACEUTICALS,INC./RIDGEFIELD-2009-SW-00294NO

PATIENT
  Sex: Female

DRUGS (9)
  1. PERSANTINE [Suspect]
     Indication: CEREBROVASCULAR ACCIDENT
     Route: 048
     Dates: start: 20090801
  2. FURADANTIN [Suspect]
     Indication: URINARY TRACT INFECTION
     Route: 048
     Dates: start: 20091001
  3. PREDNISOLONE [Concomitant]
     Route: 048
  4. METHOTREXATE [Concomitant]
     Indication: RHEUMATOID ARTHRITIS
     Dosage: 10 MG ONCE WEEKLY
     Route: 048
  5. FOLIC ACID [Concomitant]
     Route: 048
  6. ALBYL-E [Concomitant]
     Route: 048
  7. LANSOPRAZOL [Concomitant]
     Route: 048
  8. SELO-ZOK [Concomitant]
     Route: 048
  9. LESCOL [Concomitant]
     Route: 048

REACTIONS (5)
  - AGRANULOCYTOSIS [None]
  - ANAEMIA [None]
  - APLASTIC ANAEMIA [None]
  - EPISTAXIS [None]
  - THROMBOCYTOPENIA [None]
